FAERS Safety Report 9078019 (Version 1)
Quarter: 2013Q1

REPORT INFORMATION
  Report Type: Report from Study
  Country: US (occurrence: US)
  Receive Date: 20130130
  Receipt Date: 20130130
  Transmission Date: 20140127
  Serious: No
  Sender: FDA-Public Use
  Company Number: US-ABBOTT-12P-163-0957229-00

PATIENT
  Sex: Male
  Weight: 68.1 kg

DRUGS (4)
  1. HUMIRA 40 MG/0.8 ML PEN [Suspect]
     Indication: CROHN^S DISEASE
     Dates: start: 2007, end: 2007
  2. HUMIRA 40 MG/0.8 ML PEN [Suspect]
     Dates: start: 2007
  3. HUMIRA 40 MG/0.8 ML PEN [Suspect]
  4. HUMIRA 40 MG/0.8 ML PEN [Suspect]

REACTIONS (7)
  - Pneumonia [Recovered/Resolved]
  - Crohn^s disease [Recovered/Resolved]
  - Corneal abrasion [Recovered/Resolved]
  - Corneal abrasion [Not Recovered/Not Resolved]
  - Sinusitis [Recovered/Resolved]
  - Drug administration error [Not Recovered/Not Resolved]
  - Arthralgia [Recovered/Resolved]
